FAERS Safety Report 13875539 (Version 1)
Quarter: 2017Q3

REPORT INFORMATION
  Report Type: Spontaneous
  Country: JP (occurrence: JP)
  Receive Date: 20170817
  Receipt Date: 20170817
  Transmission Date: 20171127
  Serious: Yes (Death, Hospitalization, Other)
  Sender: FDA-Public Use
  Company Number: JP-BRISTOL-MYERS SQUIBB COMPANY-BMS-2017-044546

PATIENT
  Age: 92 Year
  Sex: Female
  Weight: 34.8 kg

DRUGS (8)
  1. NESINA [Concomitant]
     Active Substance: ALOGLIPTIN BENZOATE
     Indication: DIABETES MELLITUS
     Dosage: 12.5 MG, QD
     Route: 065
     Dates: end: 20170514
  2. ELIQUIS [Suspect]
     Active Substance: APIXABAN
     Indication: CEREBROVASCULAR ACCIDENT PROPHYLAXIS
     Dosage: 2.5 MG, BID
     Route: 048
  3. ATEDIO [Concomitant]
     Indication: HYPERTENSION
     Dosage: , ONCE DAILY
     Route: 048
     Dates: end: 20170514
  4. ROZEREM [Concomitant]
     Active Substance: RAMELTEON
     Indication: INSOMNIA
     Dosage: 8 MG, QD
     Route: 048
     Dates: end: 20170514
  5. ITOROL [Concomitant]
     Active Substance: ISOSORBIDE MONONITRATE
     Indication: ATRIAL FIBRILLATION
     Dosage: 20 MG, BID
     Route: 048
     Dates: end: 20170514
  6. MEMARY [Concomitant]
     Active Substance: MEMANTINE HYDROCHLORIDE
     Indication: DEMENTIA
     Dosage: 10 MG, QD
     Route: 048
     Dates: end: 20170514
  7. AROTINOLOL [Concomitant]
     Active Substance: AROTINOLOL
     Indication: ATRIAL FIBRILLATION
     Dosage: 10 MG, BID
     Route: 048
     Dates: end: 20170514
  8. ARICEPT [Concomitant]
     Active Substance: DONEPEZIL HYDROCHLORIDE
     Indication: DEMENTIA
     Dosage: 5 MG, QD
     Route: 048
     Dates: end: 20170514

REACTIONS (2)
  - Cerebral infarction [Not Recovered/Not Resolved]
  - Respiratory failure [Fatal]

NARRATIVE: CASE EVENT DATE: 20170514
